FAERS Safety Report 15261050 (Version 1)
Quarter: 2018Q3

REPORT INFORMATION
  Report Type: Spontaneous
  Country: CN (occurrence: CN)
  Receive Date: 20180809
  Receipt Date: 20180809
  Transmission Date: 20181010
  Serious: Yes (Life-Threatening)
  Sender: FDA-Public Use
  Company Number: CN-FRESENIUS KABI-FK201808598

PATIENT
  Age: 60 Year
  Sex: Male

DRUGS (3)
  1. LIDOCAINE (MANUFACTURER UNKNOWN) [Suspect]
     Active Substance: LIDOCAINE
     Indication: LOCAL ANAESTHESIA
     Dosage: 10 ML MIXED LIQUOR WITH 0,5 PERCENT LIDOCAINE AND 0,19 PERCENT ROPIVACAINE
  2. ROPIVACAINE (MANUFACTURER UNKNOWN) [Suspect]
     Active Substance: ROPIVACAINE
     Indication: LOCAL ANAESTHESIA
     Dosage: 10 ML MIXED LIQUOR WITH 0,5 PERCENT LIDOCAINE AND 0,19 PERCENT ROPIVACAINE
  3. NORMAL SALINE [Concomitant]
     Active Substance: SODIUM CHLORIDE
     Indication: LOCAL ANAESTHESIA

REACTIONS (2)
  - Anaesthetic complication [Recovered/Resolved]
  - Drug administration error [Recovered/Resolved]
